FAERS Safety Report 25703691 (Version 1)
Quarter: 2025Q3

REPORT INFORMATION
  Report Type: Spontaneous
  Country: TR (occurrence: TR)
  Receive Date: 20250820
  Receipt Date: 20250820
  Transmission Date: 20251021
  Serious: Yes (Other)
  Sender: STRIDES
  Company Number: TR-STRIDES ARCOLAB LIMITED-2025SP010543

PATIENT
  Age: 17 Year
  Sex: Male

DRUGS (1)
  1. ALBENDAZOLE [Suspect]
     Active Substance: ALBENDAZOLE
     Indication: Echinococciasis
     Route: 048

REACTIONS (2)
  - Echinococciasis [Unknown]
  - Cyst rupture [Unknown]
